FAERS Safety Report 4558807-6 (Version None)
Quarter: 2005Q1

REPORT INFORMATION
  Report Type: 
  Country: None (occurrence: None)
  Receive Date: 20050121
  Receipt Date: 20050113
  Transmission Date: 20050727
  Serious: Yes (Hospitalization)
  Sender: FDA-Public Use
  Company Number: FR-GLAXOSMITHKLINE-B0364407A

PATIENT
  Age: 68 Year
  Sex: Male

DRUGS (8)
  1. ZOVIRAX [Suspect]
     Dosage: 500MG PER DAY
     Route: 042
     Dates: start: 20041116, end: 20041126
  2. TARGOCID [Suspect]
     Dosage: 200MG SEE DOSAGE TEXT
     Route: 042
     Dates: start: 20041126, end: 20041128
  3. HEPARIN SODIUM [Suspect]
     Dosage: 70MG PER DAY
     Route: 042
     Dates: start: 20041116, end: 20041128
  4. TRIFLUCAN [Suspect]
     Dosage: 200MG PER DAY
     Route: 042
     Dates: start: 20041116, end: 20041129
  5. VANCOMYCIN [Suspect]
     Route: 042
     Dates: start: 20041116, end: 20041125
  6. FORTUM [Concomitant]
  7. CANCIDAS [Concomitant]
     Route: 042
     Dates: start: 20041127, end: 20041208
  8. CIPROFLOXACIN [Concomitant]

REACTIONS (10)
  - BLOOD CREATININE INCREASED [None]
  - CONJUNCTIVAL HAEMORRHAGE [None]
  - CREATININE RENAL CLEARANCE DECREASED [None]
  - ERYTHEMA [None]
  - EYELID OEDEMA [None]
  - PURPURA [None]
  - PYREXIA [None]
  - RASH [None]
  - RENAL FAILURE ACUTE [None]
  - THROMBOCYTOPENIA [None]
